FAERS Safety Report 6184494-X (Version None)
Quarter: 2009Q2

REPORT INFORMATION
  Report Type: 
  Country: None (occurrence: None)
  Receive Date: 20090508
  Receipt Date: 20090429
  Transmission Date: 20091009
  Serious: Yes (Hospitalization, Other)
  Sender: FDA-Public Use
  Company Number: US-CELGENEUS-163-20785-09041464

PATIENT
  Sex: Female

DRUGS (5)
  1. THALOMID [Suspect]
     Indication: MULTIPLE MYELOMA
     Route: 048
     Dates: start: 20090302, end: 20090301
  2. DEXAMETHASONE 4MG TAB [Concomitant]
     Indication: MULTIPLE MYELOMA
     Route: 065
     Dates: start: 20090302
  3. CISPLATIN [Concomitant]
     Indication: MULTIPLE MYELOMA
     Route: 065
     Dates: start: 20090302
  4. ADRIAMYCIN RDF [Concomitant]
     Indication: MULTIPLE MYELOMA
     Route: 065
     Dates: start: 20090302
  5. ETOPOSIDE [Concomitant]
     Indication: MULTIPLE MYELOMA
     Route: 065
     Dates: start: 20090302

REACTIONS (4)
  - PANCYTOPENIA [None]
  - PLEURAL EFFUSION [None]
  - PSEUDOMONAS INFECTION [None]
  - SEPSIS [None]
